FAERS Safety Report 18148383 (Version 1)
Quarter: 2020Q3

REPORT INFORMATION
  Report Type: Spontaneous
  Country: CN (occurrence: CN)
  Receive Date: 20200814
  Receipt Date: 20200814
  Transmission Date: 20201103
  Serious: Yes (Life-Threatening, Other)
  Sender: FDA-Public Use
  Company Number: CN-SA-2020SA210242

PATIENT

DRUGS (1)
  1. CLEXANE [Suspect]
     Active Substance: ENOXAPARIN SODIUM
     Indication: HABITUAL ABORTION
     Dosage: 0.4 ML, QD
     Route: 058
     Dates: start: 20200807, end: 20200807

REACTIONS (5)
  - Tinnitus [Recovered/Resolved]
  - Exposure during pregnancy [Unknown]
  - Retching [Recovered/Resolved]
  - Abdominal pain [Recovered/Resolved]
  - Syncope [Recovered/Resolved]

NARRATIVE: CASE EVENT DATE: 20200807
